FAERS Safety Report 7397788-7 (Version None)
Quarter: 2011Q2

REPORT INFORMATION
  Report Type: 
  Country: None (occurrence: None)
  Receive Date: 20110406
  Receipt Date: 20110325
  Transmission Date: 20111010
  Serious: Yes (Other)
  Sender: FDA-Public Use
  Company Number: DE-PFIZER INC-2011075834

PATIENT
  Age: 61 Year
  Sex: Female

DRUGS (13)
  1. TORASEMIDE [Concomitant]
     Indication: BLOOD PRESSURE
     Dosage: UNK
     Dates: start: 20101001
  2. DIOVAN [Concomitant]
     Indication: BLOOD PRESSURE
     Dosage: UNK
     Dates: start: 20101001
  3. MARCUMAR [Concomitant]
     Indication: PROPHYLAXIS
     Dosage: UNK
     Dates: start: 20101001
  4. ATARAX [Suspect]
     Indication: PRURITUS
     Dosage: 25 MG, AS NEEDED
     Dates: start: 20110101, end: 20110301
  5. BISOPROLOL [Concomitant]
     Indication: BLOOD PRESSURE
     Dosage: UNK
     Dates: start: 20000101
  6. KALINOR-ACID [Concomitant]
     Indication: THYROID DISORDER
     Dosage: UNK
     Dates: start: 20000101
  7. CALCIUM D3 ^STADA^ [Concomitant]
     Indication: OSTEOPOROSIS
     Dosage: UNK
     Dates: start: 20000101
  8. PREDNIHEXAL [Concomitant]
     Indication: PAIN
     Dosage: UNK
     Dates: start: 20101001
  9. EZETIMIBE [Concomitant]
     Indication: PROPHYLAXIS
     Dosage: UNK
     Dates: start: 20101001
  10. ULTRACET [Concomitant]
     Indication: PAIN
     Dosage: 37.5 MG/325MG
     Dates: start: 20101001
  11. PANTOPRAZOLE [Concomitant]
     Indication: GASTRIC DISORDER
     Dosage: UNK
     Dates: start: 20100101
  12. VITAMIN D [Concomitant]
     Indication: OSTEOPOROSIS
     Dosage: UNK
     Dates: start: 20000101
  13. MELOXICAM [Concomitant]
     Indication: ARTHRITIS
     Dosage: UNK
     Dates: start: 20100101

REACTIONS (2)
  - TACHYCARDIA [None]
  - ALCOHOL INTERACTION [None]
